FAERS Safety Report 8591382-8 (Version None)
Quarter: 2012Q3

REPORT INFORMATION
  Report Type: 
  Country: None (occurrence: None)
  Receive Date: 20120803
  Receipt Date: 20120803
  Transmission Date: 20120928
  Serious: Yes (Other)
  Sender: FDA-Public Use
  Company Number: None

PATIENT
  Sex: Female
  Weight: 117.9352 kg

DRUGS (1)
  1. CYMBALTA [Suspect]
     Indication: FIBROMYALGIA
     Dosage: 60 MG ONCE DAILY PO
     Route: 048
     Dates: start: 20070601, end: 20120725

REACTIONS (21)
  - LOSS OF EMPLOYMENT [None]
  - CHEST DISCOMFORT [None]
  - NAUSEA [None]
  - DIARRHOEA [None]
  - DRUG WITHDRAWAL SYNDROME [None]
  - FATIGUE [None]
  - NIGHTMARE [None]
  - HEADACHE [None]
  - PALPITATIONS [None]
  - TREMOR [None]
  - MEMORY IMPAIRMENT [None]
  - IRRITABILITY [None]
  - DRUG DOSE OMISSION [None]
  - SOMNOLENCE [None]
  - DISTURBANCE IN ATTENTION [None]
  - COGNITIVE DISORDER [None]
  - EMOTIONAL DISORDER [None]
  - ECONOMIC PROBLEM [None]
  - VOMITING [None]
  - DIZZINESS [None]
  - DECREASED APPETITE [None]
